FAERS Safety Report 13737896 (Version 1)
Quarter: 2017Q3

REPORT INFORMATION
  Report Type: Spontaneous
  Country: US (occurrence: US)
  Receive Date: 20170710
  Receipt Date: 20170710
  Transmission Date: 20171127
  Serious: No
  Sender: FDA-Public Use
  Company Number: US-SAOL THERAPEUTICS-2016SAO00794

PATIENT
  Sex: Male

DRUGS (2)
  1. LIORESAL [Suspect]
     Active Substance: BACLOFEN
     Indication: MUSCLE SPASTICITY
     Dosage: 350 ?G, \DAY
     Route: 037
  2. LIORESAL [Suspect]
     Active Substance: BACLOFEN
     Indication: PARAPARESIS

REACTIONS (8)
  - Confusional state [Recovering/Resolving]
  - Incorrect route of drug administration [Unknown]
  - Muscle spasticity [Unknown]
  - Pruritus [Unknown]
  - Sedation [Unknown]
  - Device infusion issue [Unknown]
  - Hypotension [Recovering/Resolving]
  - Somnolence [Unknown]

NARRATIVE: CASE EVENT DATE: 201609
